FAERS Safety Report 13091903 (Version 3)
Quarter: 2017Q1

REPORT INFORMATION
  Report Type: Spontaneous
  Country: FR (occurrence: FR)
  Receive Date: 20170106
  Receipt Date: 20170208
  Transmission Date: 20170428
  Serious: Yes (Hospitalization)
  Sender: FDA-Public Use
  Company Number: FR-AUROBINDO-AUR-APL-2016-16190

PATIENT
  Age: 31 Year
  Sex: Male

DRUGS (5)
  1. LOXAPAC                            /00401801/ [Suspect]
     Active Substance: LOXAPINE SUCCINATE
     Indication: GENERALISED ANXIETY DISORDER
     Dosage: 20 TO 40 DROPS DAILY
     Route: 048
     Dates: start: 20161122, end: 20161206
  2. DEPAKOTE [Suspect]
     Active Substance: DIVALPROEX SODIUM
     Indication: GENERALISED ANXIETY DISORDER
     Dosage: 500 MG, ONCE A DAY
     Dates: start: 20161125, end: 20161206
  3. PAROXETINE ARROW 20MG [Suspect]
     Active Substance: PAROXETINE HYDROCHLORIDE
     Indication: GENERALISED ANXIETY DISORDER
     Dosage: 20 MG, ONCE A DAY
     Route: 048
     Dates: start: 20161123, end: 20161125
  4. TERCIAN                            /00759301/ [Suspect]
     Active Substance: CYAMEMAZINE
     Indication: GENERALISED ANXIETY DISORDER
     Dosage: 30 TO 50 DROPS DAILY
     Route: 048
     Dates: start: 20161125, end: 20161206
  5. VALIUM [Suspect]
     Active Substance: DIAZEPAM
     Indication: GENERALISED ANXIETY DISORDER
     Dosage: 5 MG, TWO TIMES A DAY
     Route: 048
     Dates: start: 20161122, end: 20161206

REACTIONS (2)
  - Hepatocellular injury [Recovered/Resolved]
  - Toxic skin eruption [Recovered/Resolved]

NARRATIVE: CASE EVENT DATE: 20161206
